FAERS Safety Report 25144324 (Version 2)
Quarter: 2025Q4

REPORT INFORMATION
  Report Type: Spontaneous
  Country: US (occurrence: US)
  Receive Date: 20250401
  Receipt Date: 20251204
  Transmission Date: 20260117
  Serious: Yes (Hospitalization, Other)
  Sender: LUPIN
  Company Number: US-LUPIN PHARMACEUTICALS INC.-2025-02750

PATIENT
  Age: 24 Year
  Sex: Female

DRUGS (1)
  1. METFORMIN [Suspect]
     Active Substance: METFORMIN HYDROCHLORIDE
     Indication: Product used for unknown indication
     Dosage: 60 GRAM

REACTIONS (4)
  - Hypothermia [Unknown]
  - Intentional self-injury [Unknown]
  - Hypoglycaemia [Recovered/Resolved]
  - Intentional overdose [Unknown]
